FAERS Safety Report 8361893-9 (Version None)
Quarter: 2012Q2

REPORT INFORMATION
  Report Type: 
  Country: None (occurrence: None)
  Receive Date: 20120515
  Receipt Date: 20120510
  Transmission Date: 20120825
  Serious: Yes (Hospitalization, Other)
  Sender: FDA-Public Use
  Company Number: CH-PFIZER INC-2012113868

PATIENT
  Age: 65 Year
  Sex: Female
  Weight: 115 kg

DRUGS (2)
  1. SOLU-MEDROL [Suspect]
     Indication: BACK PAIN
     Dosage: 80 MG, SINGLE
     Route: 008
     Dates: start: 20120425, end: 20120425
  2. BUPIVACAINE [Suspect]
     Indication: BACK PAIN
     Dosage: 5 MG, SINGLE
     Route: 008
     Dates: start: 20120425, end: 20120425

REACTIONS (10)
  - NERVE INJURY [None]
  - URINARY INCONTINENCE [None]
  - TACHYCARDIA [None]
  - NAUSEA [None]
  - INCORRECT ROUTE OF DRUG ADMINISTRATION [None]
  - ANORECTAL DISCOMFORT [None]
  - VOMITING [None]
  - FAECAL INCONTINENCE [None]
  - HYPERTENSION [None]
  - PAIN [None]
